FAERS Safety Report 8532578-0 (Version None)
Quarter: 2012Q3

REPORT INFORMATION
  Report Type: 
  Country: None (occurrence: None)
  Receive Date: 20120724
  Receipt Date: 20120719
  Transmission Date: 20120928
  Serious: No
  Sender: FDA-Public Use
  Company Number: US-PFIZER INC-001-0073-970041

PATIENT

DRUGS (1)
  1. DILANTIN KAPSEAL [Suspect]
     Dosage: 100 MG DAILY
     Route: 048
     Dates: start: 19961209

REACTIONS (3)
  - ARTHRALGIA [None]
  - HYPERHIDROSIS [None]
  - CHEST PAIN [None]
